FAERS Safety Report 5883687-6 (Version None)
Quarter: 2008Q3

REPORT INFORMATION
  Report Type: 
  Country: None (occurrence: None)
  Receive Date: 20080912
  Receipt Date: 20080912
  Transmission Date: 20090109
  Serious: Yes (Hospitalization)
  Sender: FDA-Public Use
  Company Number: None

PATIENT
  Age: 71 Year
  Sex: Male
  Weight: 69.9 kg

DRUGS (1)
  1. METHIMAZOLE [Suspect]
     Indication: HYPERTHYROIDISM
     Dosage: 10 MG BID PO
     Route: 048

REACTIONS (5)
  - LEUKOPENIA [None]
  - MALAISE [None]
  - NAUSEA [None]
  - NEUTROPENIA [None]
  - PYREXIA [None]
